FAERS Safety Report 6727310-7 (Version None)
Quarter: 2010Q2

REPORT INFORMATION
  Report Type: 
  Country: None (occurrence: None)
  Receive Date: 20100517
  Receipt Date: 20100510
  Transmission Date: 20101027
  Serious: Yes (Death, Hospitalization)
  Sender: FDA-Public Use
  Company Number: HU-SANOFI-AVENTIS-2010SA003510

PATIENT
  Age: 78 Year
  Sex: Male
  Weight: 60 kg

DRUGS (7)
  1. AFLIBERCEPT [Suspect]
     Route: 042
     Dates: start: 20100113, end: 20100113
  2. AFLIBERCEPT [Suspect]
     Route: 042
     Dates: start: 20091109, end: 20091109
  3. DOCETAXEL [Suspect]
     Route: 042
     Dates: start: 20100113, end: 20100113
  4. DOCETAXEL [Suspect]
     Route: 042
     Dates: start: 20091109, end: 20091109
  5. PREDNISONE [Suspect]
     Route: 048
     Dates: start: 20091109, end: 20100112
  6. ZOLADEX [Concomitant]
     Indication: HORMONE REPLACEMENT THERAPY
     Dates: start: 20090210
  7. NEBIVOLOL HCL [Concomitant]

REACTIONS (3)
  - ACUTE RESPIRATORY FAILURE [None]
  - HYPERTENSIVE CRISIS [None]
  - RESPIRATORY FAILURE [None]
